FAERS Safety Report 6579945-2 (Version None)
Quarter: 2010Q1

REPORT INFORMATION
  Report Type: 
  Country: None (occurrence: None)
  Receive Date: 20100212
  Receipt Date: 20100201
  Transmission Date: 20100710
  Serious: Yes (Hospitalization)
  Sender: FDA-Public Use
  Company Number: FR-PFIZER INC-2010012638

PATIENT
  Age: 39 Year
  Sex: Male

DRUGS (5)
  1. DALACINE [Suspect]
     Dosage: UNK
     Route: 042
     Dates: start: 20091225, end: 20100105
  2. NEXIUM [Suspect]
     Dosage: 40 MG DAILY
     Route: 042
     Dates: start: 20091202
  3. NEXIUM [Suspect]
     Dosage: 10 MG DAILY
     Route: 042
     Dates: end: 20100111
  4. OFLOCET [Concomitant]
     Dosage: 200 MG, 2X/DAY
     Dates: end: 20091222
  5. LASILIX [Concomitant]
     Dosage: UNK
     Dates: start: 20091226

REACTIONS (2)
  - BLOOD BILIRUBIN INCREASED [None]
  - LIVER INJURY [None]
